FAERS Safety Report 7031646-2 (Version None)
Quarter: 2010Q4

REPORT INFORMATION
  Report Type: 
  Country: None (occurrence: None)
  Receive Date: 20101006
  Receipt Date: 20101006
  Transmission Date: 20110411
  Serious: Yes (Other)
  Sender: FDA-Public Use
  Company Number: None

PATIENT
  Age: 56 Year
  Sex: Female
  Weight: 113.8529 kg

DRUGS (11)
  1. JANUVIA [Suspect]
     Indication: TYPE 2 DIABETES MELLITUS
     Dosage: 100 MG DAILY PO
     Route: 048
     Dates: start: 20090918, end: 20100908
  2. ENABLEX [Concomitant]
  3. XYZAL [Concomitant]
  4. DEMADEX [Concomitant]
  5. SYNTHROID [Concomitant]
  6. DIOVAN HCT [Concomitant]
  7. NAPROSYN [Concomitant]
  8. NASONEX [Concomitant]
  9. DURAGESIC-100 [Concomitant]
  10. SIMBICORT [Concomitant]
  11. CEREFOLIN [Concomitant]

REACTIONS (2)
  - CONDITION AGGRAVATED [None]
  - VITILIGO [None]
